FAERS Safety Report 9163190 (Version 2)
Quarter: 2013Q2

REPORT INFORMATION
  Report Type: Spontaneous
  Country: PL (occurrence: None)
  Receive Date: 20130221
  Receipt Date: 20130408
  Transmission Date: 20140414
  Serious: Yes (Other)
  Sender: FDA-Public Use
  Company Number: 2013AP002655

PATIENT
  Age: 53 Year
  Sex: Male

DRUGS (5)
  1. CICLOSPORIN (CICLOSPORIN) [Suspect]
     Indication: BENIGN FAMILIAL PEMPHIGUS
  2. ISOTRETINOIN (ISOTRETINOIN) [Concomitant]
  3. MOMETASONE (MOMETASONE) [Concomitant]
  4. PREDNISONE (PREDNISONE) [Concomitant]
  5. IBUPROFEN (IBUPROFEN) [Concomitant]

REACTIONS (7)
  - Hepatic function abnormal [None]
  - Hypertension [None]
  - Dermatitis allergic [None]
  - Blood cholesterol increased [None]
  - Blood bilirubin increased [None]
  - Blood triglycerides increased [None]
  - Benign familial pemphigus [None]
